FAERS Safety Report 15160152 (Version 1)
Quarter: 2018Q3

REPORT INFORMATION
  Report Type: Spontaneous
  Country: US (occurrence: US)
  Receive Date: 20180718
  Receipt Date: 20180718
  Transmission Date: 20181010
  Serious: Yes (Hospitalization, Other)
  Sender: FDA-Public Use
  Company Number: US-ELI_LILLY_AND_COMPANY-US201807005172

PATIENT
  Age: 59 Year
  Sex: Female

DRUGS (1)
  1. DULOXETINE HYDROCHLORIDE. [Suspect]
     Active Substance: DULOXETINE HYDROCHLORIDE
     Indication: MAJOR DEPRESSION
     Dosage: 90 MG, DAILY
     Route: 048

REACTIONS (13)
  - Restlessness [Unknown]
  - Insomnia [Unknown]
  - Electrolyte imbalance [Unknown]
  - Generalised tonic-clonic seizure [Recovering/Resolving]
  - Vomiting [Unknown]
  - Anxiety [Unknown]
  - Abdominal pain [Unknown]
  - Intentional product misuse [Unknown]
  - Withdrawal syndrome [Unknown]
  - Fluid intake reduced [Unknown]
  - Nausea [Unknown]
  - Paraesthesia [Unknown]
  - Blood alkaline phosphatase increased [Unknown]
